FAERS Safety Report 5280984-2 (Version None)
Quarter: 2007Q1

REPORT INFORMATION
  Report Type: 
  Country: None (occurrence: None)
  Receive Date: 20070329
  Receipt Date: 20070321
  Transmission Date: 20070707
  Serious: Yes (Hospitalization)
  Sender: FDA-Public Use
  Company Number: US-ABBOTT-07P-163-0362375-00

PATIENT
  Sex: Female
  Weight: 50.848 kg

DRUGS (15)
  1. HUMIRA [Suspect]
     Indication: SCLERODERMA
     Dates: end: 20061201
  2. HUMIRA [Suspect]
     Dates: start: 20070101
  3. ACETYLSALICYLIC ACID SRT [Concomitant]
     Indication: ANTICOAGULANT THERAPY
     Route: 048
  4. ACETYLSALICYLIC ACID SRT [Concomitant]
     Indication: CEREBROVASCULAR ACCIDENT
  5. VITAMIN CAP [Concomitant]
     Indication: DRUG USE FOR UNKNOWN INDICATION
     Route: 048
  6. CALCIUM [Concomitant]
     Indication: DRUG USE FOR UNKNOWN INDICATION
     Route: 048
  7. PENTASA CAPSULES [Concomitant]
     Indication: GASTROINTESTINAL DISORDER
     Route: 048
  8. ATORVASTATIN CALCIUM [Concomitant]
     Indication: BLOOD CHOLESTEROL INCREASED
     Route: 048
  9. AMLODIPINE BESYLATE [Concomitant]
     Indication: BLOOD PRESSURE
     Route: 048
  10. OXYCODONE HCL [Concomitant]
     Indication: SCLERODERMA
     Route: 048
  11. OXYCODONE HCL [Concomitant]
     Indication: ARTHRALGIA
  12. OXYCODONE HCL [Concomitant]
     Indication: HEPATIC PAIN
  13. ENALAPRIL MALEATE [Concomitant]
     Indication: HYPERTENSION
     Route: 048
  14. LABETALOL HCL [Concomitant]
     Indication: HYPERTENSION
     Route: 048
  15. URSODIOL [Concomitant]
     Indication: RENAL DISORDER
     Route: 048

REACTIONS (2)
  - CEREBROVASCULAR ACCIDENT [None]
  - MYOCARDIAL INFARCTION [None]
